FAERS Safety Report 23307374 (Version 1)
Quarter: 2023Q4

REPORT INFORMATION
  Report Type: Spontaneous
  Country: GB (occurrence: GB)
  Receive Date: 20231218
  Receipt Date: 20231218
  Transmission Date: 20240110
  Serious: Yes (Other)
  Sender: FDA-Public Use
  Company Number: GB-Accord-395344

PATIENT

DRUGS (1)
  1. METHYLDOPA [Suspect]
     Active Substance: METHYLDOPA
     Indication: Hypertension

REACTIONS (1)
  - Orbital haemorrhage [Unknown]
